FAERS Safety Report 23418412 (Version 1)
Quarter: 2024Q1

REPORT INFORMATION
  Report Type: Report from Study
  Country: US (occurrence: US)
  Receive Date: 20240118
  Receipt Date: 20240118
  Transmission Date: 20240410
  Serious: Yes (Death, Hospitalization, Other)
  Sender: FDA-Public Use
  Company Number: US-ABBVIE-5592750

PATIENT
  Age: 66 Year
  Sex: Male

DRUGS (19)
  1. VIBERZI [Suspect]
     Active Substance: ELUXADOLINE
     Indication: Impaired gastric emptying
     Dosage: 200 MILLIGRAM, START DATE TEXT: --2021 OR  --2022, FORM STRENGTH- 100 MILLIGRAM
     Route: 048
     Dates: end: 202309
  2. ASPIRIN [Concomitant]
     Active Substance: ASPIRIN
     Indication: Ischaemic heart disease prophylaxis
     Dosage: STRENGTH: 81 MILLIGRAM
     Route: 065
  3. JARDIANCE [Concomitant]
     Active Substance: EMPAGLIFLOZIN
     Indication: Diabetes mellitus
     Dosage: STRENGTH: 10 MILLIGRAM
     Route: 065
  4. ELIQUIS [Concomitant]
     Active Substance: APIXABAN
     Indication: Thrombosis
     Dosage: STRENGTH: 5 MILLIGRAM
     Route: 065
  5. LEVOTHYROXINE [Concomitant]
     Active Substance: LEVOTHYROXINE\LEVOTHYROXINE SODIUM
     Indication: Hypothyroidism
     Dosage: ONCE A DAY EVERY MONDAY TO FRIDAY, AND TWICE A DAY EVERY SATURDAYS AND SUNDAYS
     Route: 065
  6. VITAMIN D [Concomitant]
     Active Substance: VITAMIN D NOS
     Indication: Product used for unknown indication
     Dosage: STRENGTH: 2000 IU
     Route: 065
  7. CREON [Concomitant]
     Active Substance: PANCRELIPASE AMYLASE\PANCRELIPASE LIPASE\PANCRELIPASE PROTEASE
     Indication: Product used for unknown indication
     Dosage: TIME INTERVAL: 0.33333333 DAYS: STRENGTH: 36000 UNIT
     Route: 048
  8. PANTOPRAZOLE [Concomitant]
     Active Substance: PANTOPRAZOLE
     Indication: Gastrooesophageal reflux disease
     Dosage: STRENGTH: 40 MILLIGRAM
     Route: 065
  9. AZASAN [Concomitant]
     Active Substance: AZATHIOPRINE
     Indication: Renal disorder prophylaxis
     Dosage: STRENGTH: 150 MILLIGRAM
     Route: 065
  10. POTASSIUM [Concomitant]
     Active Substance: POTASSIUM
     Indication: Product used for unknown indication
     Route: 065
  11. FERROUS SULFATE [Concomitant]
     Active Substance: FERROUS SULFATE
     Indication: Blood iron decreased
     Dosage: STRENGTH- 65 MILLIGRAM, IRON
     Route: 065
  12. ATORVASTATIN [Concomitant]
     Active Substance: ATORVASTATIN
     Indication: Blood cholesterol increased
     Dosage: STRENGTH: 20 MILLIGRAM
     Route: 065
  13. ACYCLOVIR [Concomitant]
     Active Substance: ACYCLOVIR
     Indication: Osteomyelitis
     Dosage: STRENGTH: 400 MILLIGRAM
     Route: 065
  14. BACTRUM T [Concomitant]
     Indication: Antibiotic prophylaxis
     Dosage: STRENGTH: 800 MILLIGRAMS, FREQUENCY TEXT: EVERY MONDAYS AND THURSDAYS
     Route: 065
  15. DOMPERIDONE [Concomitant]
     Active Substance: DOMPERIDONE
     Indication: Abdominal discomfort
     Dosage: TIME INTERVAL: 0.33333333 DAYS: STRENGTH: 10 MILLIGRAM
     Route: 065
  16. LASIX [Concomitant]
     Active Substance: FUROSEMIDE
     Indication: Fluid retention
     Dosage: STRENGTH: 80 MILLIGRAM
     Route: 065
  17. METOPROLOL TARTRATE [Concomitant]
     Active Substance: METOPROLOL TARTRATE
     Indication: Prophylaxis
     Dosage: TIME INTERVAL: 0.33333333 DAYS: STRENGTH: 50 MILLIGRAM
     Route: 065
  18. MAGNESIUM OXIDE [Concomitant]
     Active Substance: MAGNESIUM OXIDE
     Indication: Product used for unknown indication
     Route: 065
  19. PROGRAF [Concomitant]
     Active Substance: TACROLIMUS
     Indication: Prophylaxis against transplant rejection
     Dosage: STRENGTH: 2 MILLIGRAM
     Route: 065

REACTIONS (6)
  - Cardiac failure [Fatal]
  - Atrial flutter [Not Recovered/Not Resolved]
  - Atrial fibrillation [Not Recovered/Not Resolved]
  - Heart rate increased [Not Recovered/Not Resolved]
  - Off label use [Not Recovered/Not Resolved]
  - Multiple organ dysfunction syndrome [Fatal]

NARRATIVE: CASE EVENT DATE: 20230901
